FAERS Safety Report 15363722 (Version 1)
Quarter: 2018Q3

REPORT INFORMATION
  Report Type: Spontaneous
  Country: KR (occurrence: KR)
  Receive Date: 20180907
  Receipt Date: 20180907
  Transmission Date: 20181010
  Serious: Yes (Other)
  Sender: FDA-Public Use
  Company Number: KR-ANIPHARMA-2018-KR-000030

PATIENT
  Age: 49 Year
  Sex: Female

DRUGS (7)
  1. TAMOXIFEN [Suspect]
     Active Substance: TAMOXIFEN
     Route: 048
  2. EVEROLIMUS. [Concomitant]
     Active Substance: EVEROLIMUS
     Route: 065
  3. FULVESTRANT. [Suspect]
     Active Substance: FULVESTRANT
     Route: 030
     Dates: start: 201606, end: 201609
  4. ANASTROZOLE. [Suspect]
     Active Substance: ANASTROZOLE
     Route: 048
     Dates: start: 201405, end: 201508
  5. CYCLOPHOSPHAMIDE + DOXORUBICIN [Concomitant]
     Dosage: DOXORUBICIN? 60MG/M2 IV ON DAY 1; CYCLOPHOSPHAMIDE? 600MG/M2 IV ON DAY 1; REPEAT EVERY 21?28
     Dates: start: 201610, end: 20170327
  6. PACLITAXEL. [Concomitant]
     Active Substance: PACLITAXEL
     Dates: start: 20180313, end: 20180821
  7. EXEMESTANE. [Concomitant]
     Active Substance: EXEMESTANE
     Route: 065

REACTIONS (4)
  - Metastases to liver [Unknown]
  - Metastases to bone [Unknown]
  - Disease progression [Unknown]
  - Metastases to spine [Unknown]
